FAERS Safety Report 17445851 (Version 3)
Quarter: 2020Q1

REPORT INFORMATION
  Report Type: Spontaneous
  Country: FR (occurrence: FR)
  Receive Date: 20200221
  Receipt Date: 20200225
  Transmission Date: 20200409
  Serious: Yes (Other)
  Sender: FDA-Public Use
  Company Number: FR-PFIZER INC-2020068248

PATIENT
  Age: 82 Year
  Sex: Male

DRUGS (5)
  1. LEUCOVORIN CALCIUM. [Concomitant]
     Active Substance: LEUCOVORIN CALCIUM
     Indication: COLORECTAL CANCER METASTATIC
     Dosage: UNK UNK, CYCLIC (8 CYCLES)
     Dates: start: 200107, end: 200111
  2. LEUCOVORIN CALCIUM. [Concomitant]
     Active Substance: LEUCOVORIN CALCIUM
     Dosage: UNK UNK, CYCLIC (7 CYCLES)
  3. FLUOROURACIL 5 FU [Concomitant]
     Active Substance: FLUOROURACIL
     Dosage: UNK UNK, CYCLIC (7 CYCLES)
  4. OXALIPLATIN. [Suspect]
     Active Substance: OXALIPLATIN
     Indication: COLORECTAL CANCER METASTATIC
     Dosage: TOTAL DOSE 595 MG/M2, CYCLIC (7 CYCLES)
     Dates: start: 2001
  5. FLUOROURACIL 5 FU [Concomitant]
     Active Substance: FLUOROURACIL
     Indication: COLORECTAL CANCER METASTATIC
     Dosage: UNK UNK, CYCLIC (8 CYCLES)
     Dates: start: 200107, end: 200111

REACTIONS (1)
  - Peripheral sensory neuropathy [Not Recovered/Not Resolved]
